FAERS Safety Report 5831105-6 (Version None)
Quarter: 2008Q3

REPORT INFORMATION
  Report Type: 
  Country: None (occurrence: None)
  Receive Date: 20080801
  Receipt Date: 20080407
  Transmission Date: 20090109
  Serious: Yes (Other)
  Sender: FDA-Public Use
  Company Number: US-BRISTOL-MYERS SQUIBB COMPANY-14141832

PATIENT
  Age: 72 Year
  Sex: Female

DRUGS (3)
  1. COUMADIN [Suspect]
  2. MAALOX [Suspect]
     Indication: STOMACH DISCOMFORT
     Dosage: SWIGS FROM THE BOTTLE
     Route: 048
     Dates: start: 20080318, end: 20080321
  3. ASPIRIN [Suspect]

REACTIONS (2)
  - FAECES DISCOLOURED [None]
  - HAEMATOCHEZIA [None]
